FAERS Safety Report 4786194-7 (Version None)
Quarter: 2005Q4

REPORT INFORMATION
  Report Type: 
  Country: None (occurrence: None)
  Receive Date: 20051003
  Receipt Date: 20051003
  Transmission Date: 20060501
  Serious: Yes (Death)
  Sender: FDA-Public Use
  Company Number: None

PATIENT
  Age: 66 Year
  Sex: Male
  Weight: 156.8 kg

DRUGS (14)
  1. SYMLIN [Suspect]
     Indication: DIABETES MELLITUS
     Dosage: 60 MCG BID SQ
     Route: 058
     Dates: start: 20050620, end: 20050915
  2. GLARGINE INSULIN [Concomitant]
  3. ASPART INSULIN [Concomitant]
  4. METFORMIN [Concomitant]
  5. ROSIGLITAZONE [Concomitant]
  6. PRAMLINTIDE [Concomitant]
  7. SIMVASTATIN [Concomitant]
  8. FENOFIBRATE OR PLACEBO-DOUBLE-BLINDED [Concomitant]
  9. COUMADIN [Concomitant]
  10. CATAPRES [Concomitant]
  11. MONOPRIL [Concomitant]
  12. FUROSEMIDE [Concomitant]
  13. LOPRESSOR [Concomitant]
  14. ALLEGRA-D [Concomitant]

REACTIONS (4)
  - ARTERIOSCLEROSIS [None]
  - CARDIAC FAILURE CONGESTIVE [None]
  - HYPERTENSION [None]
  - SUDDEN DEATH [None]
